FAERS Safety Report 20650683 (Version 1)
Quarter: 2022Q1

REPORT INFORMATION
  Report Type: Spontaneous
  Country: US (occurrence: US)
  Receive Date: 20220329
  Receipt Date: 20220329
  Transmission Date: 20220423
  Serious: Yes (Hospitalization, Other)
  Sender: FDA-Public Use
  Company Number: US-LUPIN PHARMACEUTICALS INC.-2022-04406

PATIENT
  Age: 36 Year
  Sex: Male

DRUGS (26)
  1. AZITHROMYCIN [Suspect]
     Active Substance: AZITHROMYCIN
     Indication: Babesiosis
     Dosage: 500 MG (ONE DOSE)
     Route: 042
     Dates: start: 20190109, end: 20190109
  2. AZITHROMYCIN [Suspect]
     Active Substance: AZITHROMYCIN
     Dosage: 500 MG, QD
     Route: 048
     Dates: start: 201901, end: 201901
  3. AZITHROMYCIN [Suspect]
     Active Substance: AZITHROMYCIN
     Dosage: 250 MG, QD
     Route: 048
     Dates: start: 201901, end: 201901
  4. AZITHROMYCIN [Suspect]
     Active Substance: AZITHROMYCIN
     Dosage: 500 MG, QD
     Route: 048
     Dates: start: 20190329, end: 2019
  5. AZITHROMYCIN [Suspect]
     Active Substance: AZITHROMYCIN
     Dosage: 500 MG, QD
     Route: 048
     Dates: start: 20190828, end: 2019
  6. AZITHROMYCIN [Suspect]
     Active Substance: AZITHROMYCIN
     Dosage: 500 MG, QD
     Route: 048
     Dates: start: 20190917, end: 2019
  7. AZITHROMYCIN [Suspect]
     Active Substance: AZITHROMYCIN
     Dosage: 500 MG, QD
     Route: 048
     Dates: start: 20191001, end: 20191114
  8. AZITHROMYCIN [Suspect]
     Active Substance: AZITHROMYCIN
     Dosage: 500 MG, QD
     Route: 048
     Dates: start: 20191213, end: 20200128
  9. AZITHROMYCIN [Suspect]
     Active Substance: AZITHROMYCIN
     Dosage: 500 MG, QD
     Route: 048
     Dates: start: 20200129, end: 2020
  10. AZITHROMYCIN [Suspect]
     Active Substance: AZITHROMYCIN
     Dosage: 1000 MG, QD
     Route: 048
     Dates: start: 20200310, end: 2020
  11. ATOVAQUONE [Suspect]
     Active Substance: ATOVAQUONE
     Indication: Babesiosis
     Dosage: 750 MG, QD
     Route: 048
     Dates: start: 20190109, end: 201901
  12. ATOVAQUONE [Suspect]
     Active Substance: ATOVAQUONE
     Dosage: 750 MG, BID
     Route: 048
     Dates: start: 20190329, end: 2019
  13. ATOVAQUONE [Suspect]
     Active Substance: ATOVAQUONE
     Dosage: 750 MG, BID
     Route: 048
     Dates: start: 20190828, end: 201909
  14. ATOVAQUONE [Suspect]
     Active Substance: ATOVAQUONE
     Dosage: 750 MG, BID
     Route: 048
     Dates: start: 20190917, end: 201909
  15. ATOVAQUONE [Suspect]
     Active Substance: ATOVAQUONE
     Dosage: 750 MG, QD
     Route: 048
     Dates: start: 20191001, end: 20191114
  16. ATOVAQUONE [Suspect]
     Active Substance: ATOVAQUONE
     Dosage: 750 MG, BID
     Route: 048
     Dates: start: 20191213, end: 20200128
  17. ATOVAQUONE [Suspect]
     Active Substance: ATOVAQUONE
     Dosage: 750 MG, QD
     Route: 048
     Dates: start: 20200129, end: 2020
  18. ATOVAQUONE [Suspect]
     Active Substance: ATOVAQUONE
     Dosage: 750 MG, QD
     Route: 048
     Dates: start: 20200310, end: 2020
  19. METHOTREXATE [Suspect]
     Active Substance: METHOTREXATE
     Indication: Granulomatosis with polyangiitis
     Dosage: UNK
     Route: 065
  20. CYCLOPHOSPHAMIDE [Suspect]
     Active Substance: CYCLOPHOSPHAMIDE
     Indication: Granulomatosis with polyangiitis
     Dosage: UNK
     Route: 065
  21. RITUXIMAB [Suspect]
     Active Substance: RITUXIMAB
     Indication: Granulomatosis with polyangiitis
     Dosage: UNK (RECEIVED TWO DOSES OF RITUXIMAB; THE LAST OF WHICH WAS ADMINISTERED IN JANUARY OF 2017)
     Route: 065
     Dates: end: 201701
  22. PREDNISONE [Suspect]
     Active Substance: PREDNISONE
     Indication: Granulomatosis with polyangiitis
     Dosage: UNK UNK, QD (7.5-20 MG)
     Route: 065
  23. PREDNISONE [Suspect]
     Active Substance: PREDNISONE
     Dosage: 7.5 MILLIGRAM, QD
     Route: 065
  24. CLINDAMYCIN [Suspect]
     Active Substance: CLINDAMYCIN
     Indication: Babesiosis
     Dosage: 300 MG, TID
     Route: 048
     Dates: start: 20190917, end: 2019
  25. CLINDAMYCIN [Suspect]
     Active Substance: CLINDAMYCIN
     Dosage: 450 MG, TID
     Route: 048
     Dates: start: 20200129, end: 2020
  26. MALARONE [Suspect]
     Active Substance: ATOVAQUONE\PROGUANIL HYDROCHLORIDE
     Indication: Babesiosis
     Dosage: 4 DOSAGE FORM, QD
     Route: 048
     Dates: start: 20200129, end: 2020

REACTIONS (5)
  - Disease recurrence [Recovered/Resolved]
  - Drug resistance [Unknown]
  - Nausea [Unknown]
  - Diarrhoea [Unknown]
  - Off label use [Unknown]

NARRATIVE: CASE EVENT DATE: 20190109
